FAERS Safety Report 8054467-0 (Version None)
Quarter: 2012Q1

REPORT INFORMATION
  Report Type: 
  Country: None (occurrence: None)
  Receive Date: 20120118
  Receipt Date: 20120112
  Transmission Date: 20120608
  Serious: Yes (Hospitalization, Other)
  Sender: FDA-Public Use
  Company Number: US-MERCK-0804USA00827

PATIENT
  Age: 61 Year
  Sex: Female
  Weight: 75 kg

DRUGS (1)
  1. FOSAMAX [Suspect]
     Indication: OSTEOPOROSIS
     Route: 048
     Dates: start: 20011027, end: 20060807

REACTIONS (26)
  - PULMONARY VALVE INCOMPETENCE [None]
  - PATELLA FRACTURE [None]
  - EMPHYSEMA [None]
  - CONTUSION [None]
  - TRICUSPID VALVE INCOMPETENCE [None]
  - SINUS BRADYCARDIA [None]
  - OSTEOPENIA [None]
  - INTERSTITIAL LUNG DISEASE [None]
  - IMPAIRED HEALING [None]
  - SQUAMOUS CELL CARCINOMA [None]
  - OSTEOMYELITIS [None]
  - ARTHROPATHY [None]
  - GASTROOESOPHAGEAL REFLUX DISEASE [None]
  - AORTIC DILATATION [None]
  - TENDONITIS [None]
  - STEROID THERAPY [None]
  - PULMONARY HYPERTENSION [None]
  - OSTEOARTHRITIS [None]
  - CHRONIC OBSTRUCTIVE PULMONARY DISEASE [None]
  - OSTEONECROSIS OF JAW [None]
  - URINARY TRACT INFECTION [None]
  - AORTIC VALVE INCOMPETENCE [None]
  - ASTHMA [None]
  - CARDIAC DISORDER [None]
  - ORAL INFECTION [None]
  - BLOOD CHOLESTEROL INCREASED [None]
